FAERS Safety Report 19020996 (Version 2)
Quarter: 2021Q2

REPORT INFORMATION
  Report Type: Spontaneous
  Country: DE (occurrence: DE)
  Receive Date: 20210317
  Receipt Date: 20210416
  Transmission Date: 20210717
  Serious: Yes (Hospitalization)
  Sender: FDA-Public Use
  Company Number: DE-TEVA-2021-DE-1890180

PATIENT
  Age: 64 Year
  Sex: Female

DRUGS (4)
  1. OXYCODON [Suspect]
     Active Substance: OXYCODONE
     Dosage: 40 MILLIGRAM DAILY;  1?0?1?0
     Route: 065
  2. LEVOTHYROXIN?NATRIUM [Concomitant]
     Active Substance: LEVOTHYROXINE SODIUM
     Dosage: 50 MICROGRAM DAILY;  1?0?0?0
  3. PREGABALIN. [Interacting]
     Active Substance: PREGABALIN
     Dosage: 100 MILLIGRAM DAILY;  1?0?1?0
     Route: 065
  4. DULOXETIN [Concomitant]
     Active Substance: DULOXETINE
     Dosage: 120 MILLIGRAM DAILY;   1?0?1?0

REACTIONS (4)
  - Abdominal pain [Recovered/Resolved]
  - Labelled drug-drug interaction medication error [Recovered/Resolved]
  - Nausea [Recovered/Resolved]
  - Retching [Recovered/Resolved]
